FAERS Safety Report 13839441 (Version 1)
Quarter: 2017Q3

REPORT INFORMATION
  Report Type: Spontaneous
  Country: US (occurrence: US)
  Receive Date: 20170805
  Receipt Date: 20170805
  Transmission Date: 20171127
  Serious: Yes (Hospitalization)
  Sender: FDA-Public Use
  Company Number: None

PATIENT
  Age: 78 Year
  Sex: Female

DRUGS (6)
  1. ALLOPURINOL. [Suspect]
     Active Substance: ALLOPURINOL
     Indication: CHRONIC KIDNEY DISEASE
     Route: 048
     Dates: start: 20170405, end: 20170425
  2. ACETAZOLAMIDE. [Concomitant]
     Active Substance: ACETAZOLAMIDE
  3. LISINOPRIL. [Concomitant]
     Active Substance: LISINOPRIL
  4. HYDROCHLOROTHIAZIDE. [Suspect]
     Active Substance: HYDROCHLOROTHIAZIDE
  5. FAMOTIDINE. [Concomitant]
     Active Substance: FAMOTIDINE
  6. INSULIN ASPART [Concomitant]
     Active Substance: INSULIN ASPART

REACTIONS (7)
  - Pruritus [None]
  - Erythema multiforme [None]
  - Cellulitis [None]
  - Candida infection [None]
  - Odynophagia [None]
  - Oesophagitis [None]
  - Rash macular [None]

NARRATIVE: CASE EVENT DATE: 20170503
